FAERS Safety Report 11765956 (Version 1)
Quarter: 2015Q4

REPORT INFORMATION
  Report Type: Spontaneous
  Country: EG (occurrence: EG)
  Receive Date: 20151122
  Receipt Date: 20151122
  Transmission Date: 20160304
  Serious: Yes (Other)
  Sender: FDA-Public Use
  Company Number: PHHY2015EG148193

PATIENT
  Sex: Female

DRUGS (1)
  1. CATAFLAM [Suspect]
     Active Substance: DICLOFENAC POTASSIUM
     Indication: PAIN
     Dosage: 1 DF, UNK
     Route: 065

REACTIONS (5)
  - Hypersensitivity [Recovered/Resolved]
  - Vomiting [Recovered/Resolved]
  - Choking [Unknown]
  - Asphyxia [Recovered/Resolved]
  - Pruritus [Recovered/Resolved]

NARRATIVE: CASE EVENT DATE: 20151109
